FAERS Safety Report 4897371-9 (Version None)
Quarter: 2006Q1

REPORT INFORMATION
  Report Type: 
  Country: None (occurrence: None)
  Receive Date: 20060130
  Receipt Date: 20060130
  Transmission Date: 20060701
  Serious: Yes (Hospitalization)
  Sender: FDA-Public Use
  Company Number: None

PATIENT
  Age: 64 Year
  Sex: Male
  Weight: 72.2 kg

DRUGS (4)
  1. ENOXAPARIN SODIUM [Suspect]
  2. AMOXICILLIN / CLAVULANIC [Concomitant]
  3. WARFARIN SODIUM [Concomitant]
  4. OMEPRAZOLE [Concomitant]

REACTIONS (1)
  - HAEMORRHAGE [None]
